FAERS Safety Report 10971271 (Version 1)
Quarter: 2015Q1

REPORT INFORMATION
  Report Type: Report from Study
  Country: TR (occurrence: TR)
  Receive Date: 20150331
  Receipt Date: 20150331
  Transmission Date: 20150721
  Serious: Yes (Other)
  Sender: FDA-Public Use
  Company Number: TR-BAYER-2015-054065

PATIENT
  Age: 41 Year
  Sex: Female
  Weight: 69.84 kg

DRUGS (1)
  1. BETAFERON [Suspect]
     Active Substance: INTERFERON BETA-1B
     Indication: MULTIPLE SCLEROSIS
     Dosage: UNK
     Route: 058
     Dates: start: 20110506

REACTIONS (2)
  - Fall [None]
  - Pain in extremity [None]

NARRATIVE: CASE EVENT DATE: 20150210
